FAERS Safety Report 9996046 (Version 1)
Quarter: 2014Q1

REPORT INFORMATION
  Report Type: Spontaneous
  Country: US (occurrence: None)
  Receive Date: 20140218
  Receipt Date: 20140218
  Transmission Date: 20141002
  Serious: Yes (Other)
  Sender: FDA-Public Use
  Company Number: 1000052767

PATIENT
  Age: 59 Year
  Sex: Male

DRUGS (2)
  1. VIIBRYD [Suspect]
     Indication: DEPRESSION
     Dosage: 10MG (10 MG, 1 IN 1 D), ORAL
     Route: 048
     Dates: start: 20140107
  2. ALPRAZOLAM (ALPRAZOLAM) (ALPRAZOLAM) [Concomitant]

REACTIONS (1)
  - Depression [None]
